FAERS Safety Report 9017237 (Version 1)
Quarter: 2013Q1

REPORT INFORMATION
  Report Type: Spontaneous
  Country: US (occurrence: US)
  Receive Date: 20130117
  Receipt Date: 20130117
  Transmission Date: 20140127
  Serious: Yes (Death)
  Sender: FDA-Public Use
  Company Number: US-TEVA-381068USA

PATIENT
  Sex: Male

DRUGS (9)
  1. PROVIGIL [Suspect]
     Indication: NARCOLEPSY
     Dosage: 200 MILLIGRAM DAILY; QAM
     Route: 048
     Dates: end: 201212
  2. DEXAMETHASONE [Concomitant]
     Dosage: 1-4/DAY
     Route: 048
  3. CELEXA [Concomitant]
     Indication: AFFECTIVE DISORDER
     Dosage: 40 MILLIGRAM DAILY;
     Route: 048
  4. METOPROLOL [Concomitant]
     Indication: BLOOD PRESSURE INCREASED
     Dosage: 100 MILLIGRAM DAILY;
     Route: 048
  5. RAPAFLO [Concomitant]
     Indication: PROSTATIC DISORDER
     Dosage: 8 MILLIGRAM DAILY;
     Route: 048
  6. SULFAMETHOXAZOLE [Concomitant]
     Indication: BACTERIAL INFECTION
     Route: 048
  7. LEVETIRACETAM [Concomitant]
     Dosage: 500 MILLIGRAM DAILY;
     Route: 048
  8. CIMETIDINE [Concomitant]
     Indication: DYSPEPSIA
     Dosage: 40 MILLIGRAM DAILY;
     Route: 048
  9. MEGESTROL [Concomitant]
     Indication: DYSGEUSIA
     Route: 048

REACTIONS (1)
  - Brain neoplasm malignant [Fatal]
